FAERS Safety Report 4634491-8 (Version None)
Quarter: 2005Q2

REPORT INFORMATION
  Report Type: 
  Country: None (occurrence: None)
  Receive Date: 20050413
  Receipt Date: 20050405
  Transmission Date: 20051028
  Serious: Yes (Hospitalization)
  Sender: FDA-Public Use
  Company Number: GB-MERCK-0504GBR00040

PATIENT
  Age: 82 Year
  Sex: Male

DRUGS (14)
  1. PROSCAR [Suspect]
     Route: 048
  2. COZAAR [Concomitant]
     Route: 048
  3. ASPIRIN [Concomitant]
     Route: 065
  4. FUROSEMIDE [Concomitant]
     Route: 065
  5. ATENOLOL [Concomitant]
     Route: 065
  6. VASOTEC [Concomitant]
     Route: 065
  7. GLIPIZIDE [Concomitant]
     Route: 065
  8. MEBEVERINE HYDROCHLORIDE [Concomitant]
     Route: 065
  9. DANTHRON AND POLOXAMER 188 [Concomitant]
     Route: 065
  10. ALFUZOSIN HYDROCHLORIDE [Concomitant]
     Route: 065
  11. LOPERAMIDE HYDROCHLORIDE [Concomitant]
     Route: 065
  12. DICYCLOMINE HYDROCHLORIDE [Concomitant]
     Route: 065
  13. PIROXICAM [Concomitant]
     Route: 061
  14. [THERAPY UNSPECIFIED] [Concomitant]
     Route: 048

REACTIONS (1)
  - CEREBROVASCULAR ACCIDENT [None]
